FAERS Safety Report 6701197-0 (Version None)
Quarter: 2010Q2

REPORT INFORMATION
  Report Type: 
  Country: None (occurrence: None)
  Receive Date: 20100428
  Receipt Date: 20100428
  Transmission Date: 20101027
  Serious: No
  Sender: FDA-Public Use
  Company Number: None

PATIENT
  Sex: Female
  Weight: 65.7716 kg

DRUGS (2)
  1. DYAZIDE [Suspect]
     Indication: HYPERTENSION
     Dates: start: 20070701
  2. DYAZIDE [Suspect]
     Indication: HYPERTENSION
     Dates: start: 20080201

REACTIONS (4)
  - CYSTITIS [None]
  - NAUSEA [None]
  - PRODUCT SUBSTITUTION ISSUE [None]
  - VOMITING [None]
